FAERS Safety Report 8438412-1 (Version None)
Quarter: 2012Q2

REPORT INFORMATION
  Report Type: 
  Country: None (occurrence: None)
  Receive Date: 20120614
  Receipt Date: 20120605
  Transmission Date: 20120825
  Serious: Yes (Other)
  Sender: FDA-Public Use
  Company Number: US-ELI_LILLY_AND_COMPANY-US201206002116

PATIENT
  Sex: Female

DRUGS (4)
  1. FOSAMAX [Concomitant]
     Indication: OSTEOPOROSIS
  2. FORTEO [Suspect]
     Indication: OSTEOPENIA
     Dosage: UNK, QD
     Dates: start: 20070101, end: 20090101
  3. BONIVA [Concomitant]
     Indication: OSTEOPOROSIS
  4. FORTEO [Suspect]
     Dosage: UNK, QD
     Dates: start: 20120101

REACTIONS (2)
  - INCORRECT DRUG ADMINISTRATION DURATION [None]
  - FEMUR FRACTURE [None]
